FAERS Safety Report 20698066 (Version 2)
Quarter: 2025Q2

REPORT INFORMATION
  Report Type: Spontaneous
  Country: US (occurrence: US)
  Receive Date: 20220412
  Receipt Date: 20250609
  Transmission Date: 20250716
  Serious: Yes (Other)
  Sender: AUROBINDO
  Company Number: US-MLMSERVICE-20220315-3431339-1

PATIENT
  Age: 12 Year
  Sex: Female

DRUGS (2)
  1. AMOXICILLIN [Suspect]
     Active Substance: AMOXICILLIN
     Indication: Scarlet fever
     Route: 048
  2. AMOXICILLIN [Suspect]
     Active Substance: AMOXICILLIN
     Indication: Allergy test

REACTIONS (15)
  - Anaphylactoid reaction [Recovered/Resolved]
  - Type III immune complex mediated reaction [Recovered/Resolved]
  - Type IV hypersensitivity reaction [Recovered/Resolved]
  - Drug hypersensitivity [Recovering/Resolving]
  - Fatigue [Recovered/Resolved]
  - Rash [Recovered/Resolved]
  - Oedema [Recovered/Resolved]
  - Joint swelling [Recovered/Resolved]
  - Dyspnoea [Recovered/Resolved]
  - Erythema [Recovered/Resolved]
  - Pruritus [Recovered/Resolved]
  - Lip oedema [Recovered/Resolved]
  - Periorbital oedema [Recovered/Resolved]
  - Nausea [Recovered/Resolved]
  - Pyrexia [Recovered/Resolved]
